FAERS Safety Report 10156808 (Version 1)
Quarter: 2014Q2

REPORT INFORMATION
  Report Type: Spontaneous
  Country: JP (occurrence: JP)
  Receive Date: 20140507
  Receipt Date: 20140507
  Transmission Date: 20141212
  Serious: Yes (Other)
  Sender: FDA-Public Use
  Company Number: JP-JNJFOC-20140500949

PATIENT
  Sex: 0

DRUGS (2)
  1. DUROTEP MT [Suspect]
     Indication: PAIN
     Route: 062
  2. ONEDURO [Suspect]
     Indication: PAIN
     Route: 062

REACTIONS (4)
  - Coma [Recovered/Resolved]
  - Somnolence [Unknown]
  - Nausea [Unknown]
  - Vomiting [Unknown]
